FAERS Safety Report 6162755-8 (Version None)
Quarter: 2009Q2

REPORT INFORMATION
  Report Type: 
  Country: None (occurrence: None)
  Receive Date: 20090421
  Receipt Date: 20080508
  Transmission Date: 20091009
  Serious: No
  Sender: FDA-Public Use
  Company Number: US-ASTRAZENECA-2008UW09431

PATIENT
  Age: 49 Year
  Sex: Female
  Weight: 74.1 kg

DRUGS (4)
  1. TOPROL-XL [Suspect]
     Route: 048
  2. SYNTHROID [Suspect]
     Indication: HYPOTHYROIDISM
     Route: 048
     Dates: start: 20020101
  3. BENICAR [Suspect]
     Route: 048
  4. M.V.I. [Concomitant]

REACTIONS (6)
  - ALOPECIA [None]
  - ANXIETY [None]
  - FATIGUE [None]
  - HEADACHE [None]
  - HYPERTENSION [None]
  - PALPITATIONS [None]
